FAERS Safety Report 7434832-2 (Version None)
Quarter: 2011Q2

REPORT INFORMATION
  Report Type: 
  Country: None (occurrence: None)
  Receive Date: 20110425
  Receipt Date: 20110414
  Transmission Date: 20111010
  Serious: Yes (Hospitalization)
  Sender: FDA-Public Use
  Company Number: FR-BAXTER-2011BH011977

PATIENT
  Age: 56 Year
  Sex: Female

DRUGS (13)
  1. ZOPHREN [Concomitant]
     Indication: PREMEDICATION
     Route: 065
  2. SOLU-MEDROL [Concomitant]
     Indication: PREMEDICATION
     Route: 065
  3. ESOMEPRAZOLE [Concomitant]
     Indication: PRODUCT USED FOR UNKNOWN INDICATION
     Route: 065
  4. FLUOROURACIL [Suspect]
     Route: 042
     Dates: start: 20100613, end: 20100613
  5. CYCLOPHOSPHAMIDE [Suspect]
     Route: 042
     Dates: start: 20100613, end: 20100613
  6. EPIRUBICIN HYDROCHLORIDE [Suspect]
     Route: 042
     Dates: start: 20100602, end: 20100602
  7. CYCLOPHOSPHAMIDE [Suspect]
     Indication: BREAST CANCER
     Route: 042
     Dates: start: 20100803, end: 20100803
  8. FLUOROURACIL [Suspect]
     Route: 042
     Dates: start: 20100602, end: 20100602
  9. EPIRUBICIN HYDROCHLORIDE [Suspect]
     Route: 042
     Dates: start: 20100613, end: 20100613
  10. FLUOROURACIL [Suspect]
     Indication: BREAST CANCER
     Route: 042
     Dates: start: 20100803, end: 20100803
  11. FLECAINE [Concomitant]
     Indication: PRODUCT USED FOR UNKNOWN INDICATION
     Route: 065
  12. CYCLOPHOSPHAMIDE [Suspect]
     Route: 042
     Dates: start: 20100602, end: 20100602
  13. EPIRUBICIN HYDROCHLORIDE [Suspect]
     Indication: BREAST CANCER
     Route: 042
     Dates: start: 20100803, end: 20100803

REACTIONS (3)
  - RADIATION MUCOSITIS [None]
  - SKIN EXFOLIATION [None]
  - PAIN [None]
